FAERS Safety Report 4906158-X (Version None)
Quarter: 2006Q1

REPORT INFORMATION
  Report Type: 
  Country: None (occurrence: None)
  Receive Date: 20060206
  Receipt Date: 20060120
  Transmission Date: 20060701
  Serious: Yes (Hospitalization)
  Sender: FDA-Public Use
  Company Number: DSA_27676_2006

PATIENT
  Sex: Female

DRUGS (2)
  1. TEMESTA [Suspect]
     Dosage: 8 MG Q DAY PO
     Route: 048
     Dates: start: 19760101, end: 20050101
  2. TEMESTA [Suspect]
     Dosage: 8 MG Q DAY PO
     Route: 048
     Dates: start: 20050101

REACTIONS (4)
  - AMNESIA [None]
  - CONFUSIONAL STATE [None]
  - DEMENTIA [None]
  - DRUG WITHDRAWAL SYNDROME [None]
